FAERS Safety Report 9082056 (Version 1)
Quarter: 2013Q1

REPORT INFORMATION
  Report Type: Report from Study
  Country: US (occurrence: US)
  Receive Date: 20130131
  Receipt Date: 20130131
  Transmission Date: 20140127
  Serious: No
  Sender: FDA-Public Use
  Company Number: US-ABBOTT-12P-163-0991209-00

PATIENT
  Age: 50 Year
  Sex: Female

DRUGS (4)
  1. HUMIRA [Suspect]
     Indication: PSORIASIS
     Dosage: LOADING DOSE
     Dates: start: 20121002
  2. ADVAIR [Concomitant]
     Indication: ASTHMA
  3. ALBUTEROL [Concomitant]
     Indication: ASTHMA
  4. NASAL SPRAY [Concomitant]
     Indication: HYPERSENSITIVITY

REACTIONS (2)
  - Injection site swelling [Recovering/Resolving]
  - Injection site pain [Recovering/Resolving]
